FAERS Safety Report 4482129-5 (Version None)
Quarter: 2004Q3

REPORT INFORMATION
  Report Type: 
  Country: None (occurrence: None)
  Receive Date: 20040921
  Receipt Date: 20040517
  Transmission Date: 20050211
  Serious: Yes (Hospitalization)
  Sender: FDA-Public Use
  Company Number: 163-20785-04050423(0)

PATIENT
  Age: 53 Year
  Sex: Male

DRUGS (17)
  1. THALOMID [Suspect]
     Indication: MULTIPLE MYELOMA
     Dosage: SEE IMAGE
     Route: 048
     Dates: start: 20040117, end: 20040220
  2. THALOMID [Suspect]
     Indication: MULTIPLE MYELOMA
     Dosage: SEE IMAGE
     Route: 048
     Dates: start: 20040221, end: 20040316
  3. THALOMID [Suspect]
     Indication: MULTIPLE MYELOMA
     Dosage: SEE IMAGE
     Route: 048
     Dates: start: 20040317, end: 20040324
  4. THALOMID [Suspect]
     Indication: MULTIPLE MYELOMA
     Dosage: SEE IMAGE
     Route: 048
     Dates: start: 20040413, end: 20040418
  5. THALOMID [Suspect]
     Indication: MULTIPLE MYELOMA
     Dosage: SEE IMAGE
     Route: 048
     Dates: start: 20040426
  6. DEXAMETHASONE [Suspect]
     Indication: MULTIPLE MYELOMA
     Dosage: 40 MG, QD, PER ORAL
     Route: 048
     Dates: start: 20040427, end: 20040430
  7. CYCLOPHOSPHAMIDE [Suspect]
     Indication: MULTIPLE MYELOMA
     Dosage: 760 MG, QD, INTRAVENOUS
     Route: 042
     Dates: start: 20040427, end: 20040430
  8. ETOPOSIDE [Suspect]
     Indication: MULTIPLE MYELOMA
     Dosage: 76 MG, QD, INTRAVENOUS
     Route: 042
     Dates: start: 20040427, end: 20040430
  9. CISPLATIN [Suspect]
     Indication: MULTIPLE MYELOMA
     Dosage: 28 MG, QD, INTRAVENOUS
     Route: 042
     Dates: start: 20040427, end: 20040430
  10. LOVENOX [Concomitant]
  11. SYNTHROID [Concomitant]
  12. PROTONIX [Concomitant]
  13. AMBIEN [Concomitant]
  14. FLUCONAZOLE [Concomitant]
  15. ACYCLOVIR [Concomitant]
  16. TEQUIN [Concomitant]
  17. G-CSF (GRANULOCYTE COLONY STIMULATING FACTOR) [Concomitant]

REACTIONS (9)
  - BLOOD CHLORIDE DECREASED [None]
  - BLOOD POTASSIUM DECREASED [None]
  - BLOOD THYROID STIMULATING HORMONE DECREASED [None]
  - DIZZINESS [None]
  - LABORATORY TEST ABNORMAL [None]
  - NEUROPATHY PERIPHERAL [None]
  - PALPITATIONS [None]
  - THYROXINE INCREASED [None]
  - TRI-IODOTHYRONINE INCREASED [None]
